FAERS Safety Report 4628558-8 (Version None)
Quarter: 2005Q2

REPORT INFORMATION
  Report Type: 
  Country: None (occurrence: None)
  Receive Date: 20050404
  Receipt Date: 20050325
  Transmission Date: 20051028
  Serious: Yes (Hospitalization)
  Sender: FDA-Public Use
  Company Number: 2005-03-1072

PATIENT
  Age: 40 Year
  Sex: Female

DRUGS (2)
  1. TEMODAL [Suspect]
     Dosage: 75 MG/M^2
  2. RADIATION THERAPY [Concomitant]

REACTIONS (1)
  - INTRACRANIAL VENOUS SINUS THROMBOSIS [None]
